FAERS Safety Report 6236331-2 (Version None)
Quarter: 2009Q2

REPORT INFORMATION
  Report Type: 
  Country: None (occurrence: None)
  Receive Date: 20090619
  Receipt Date: 20090608
  Transmission Date: 20091009
  Serious: Yes (Other)
  Sender: FDA-Public Use
  Company Number: US-JNJFOC-20090502196

PATIENT
  Age: 72 Year
  Sex: Female
  Weight: 59.88 kg

DRUGS (5)
  1. EXTRA STRENGTH TYLENOL [Suspect]
     Indication: INSOMNIA
     Dosage: 2 DOSES PER NIGHT AS NEEDED
     Route: 048
  2. MULTI-VITAMINS [Concomitant]
     Indication: MEDICAL DIET
  3. LISINOPRIL [Concomitant]
     Indication: HYPERTENSION
  4. SIMVASTATIN [Concomitant]
     Indication: BLOOD CHOLESTEROL INCREASED
  5. ESTRADIOL [Concomitant]
     Indication: HOT FLUSH

REACTIONS (3)
  - ABNORMAL DREAMS [None]
  - HALLUCINATION [None]
  - SOMNOLENCE [None]
